FAERS Safety Report 9215177 (Version 2)
Quarter: 2013Q2

REPORT INFORMATION
  Report Type: Spontaneous
  Country: US (occurrence: US)
  Receive Date: 20130405
  Receipt Date: 20130524
  Transmission Date: 20140414
  Serious: Yes (Other)
  Sender: FDA-Public Use
  Company Number: US-BAYER-2013-041476

PATIENT
  Age: 26 Year
  Sex: Female
  Weight: 50 kg

DRUGS (1)
  1. ALEVE CAPLET [Suspect]
     Indication: SELF INJURIOUS BEHAVIOUR
     Dosage: 10 DF, UNK
     Route: 048
     Dates: start: 20130328

REACTIONS (2)
  - Intentional overdose [None]
  - Self injurious behaviour [None]
